FAERS Safety Report 6406876-0 (Version None)
Quarter: 2009Q4

REPORT INFORMATION
  Report Type: 
  Country: None (occurrence: None)
  Receive Date: 20091020
  Receipt Date: 20091013
  Transmission Date: 20100525
  Serious: Yes (Other)
  Sender: FDA-Public Use
  Company Number: CH-ASTRAZENECA-2009SE19793

PATIENT
  Age: 986 Month
  Sex: Female
  Weight: 71 kg

DRUGS (9)
  1. ARIMIDEX [Suspect]
     Route: 048
  2. GLUTRIL [Concomitant]
     Indication: DIABETES MELLITUS
  3. JANUVIA [Concomitant]
  4. TORADEMID [Concomitant]
  5. COZAAR [Concomitant]
  6. METO-ZEROK RETARD [Concomitant]
  7. AMLODIPINE [Concomitant]
  8. CA AND VITAMINE D3 [Concomitant]
  9. CHONDROSULF [Concomitant]

REACTIONS (1)
  - SINUS POLYP [None]
